FAERS Safety Report 17744492 (Version 1)
Quarter: 2020Q2

REPORT INFORMATION
  Report Type: Report from Study
  Country: DE (occurrence: BR)
  Receive Date: 20200505
  Receipt Date: 20200505
  Transmission Date: 20200714
  Serious: Yes (Other)
  Sender: FDA-Public Use
  Company Number: BR-ELI_LILLY_AND_COMPANY-BR202005000630

PATIENT
  Age: 69 Year
  Sex: Male

DRUGS (1)
  1. CETUXIMAB. [Suspect]
     Active Substance: CETUXIMAB
     Indication: HEAD AND NECK CANCER
     Dosage: UNK, WEEKLY (1/W)
     Route: 042
     Dates: start: 20170828, end: 201808

REACTIONS (5)
  - Pain [Not Recovered/Not Resolved]
  - Weight decreased [Not Recovered/Not Resolved]
  - Renal impairment [Unknown]
  - Malignant neoplasm progression [Not Recovered/Not Resolved]
  - Spinal cord paralysis [Not Recovered/Not Resolved]

NARRATIVE: CASE EVENT DATE: 201808
